FAERS Safety Report 23622033 (Version 3)
Quarter: 2024Q2

REPORT INFORMATION
  Report Type: Spontaneous
  Country: ZA (occurrence: ZA)
  Receive Date: 20240312
  Receipt Date: 20240422
  Transmission Date: 20240716
  Serious: Yes (Hospitalization, Other)
  Sender: FDA-Public Use
  Company Number: ZA-PFIZER INC-PV202400029463

PATIENT
  Age: 33 Year
  Sex: Female
  Weight: 60 kg

DRUGS (1)
  1. DEPO-PROVERA [Suspect]
     Active Substance: MEDROXYPROGESTERONE ACETATE
     Indication: Contraception
     Dosage: 150 MG
     Route: 030

REACTIONS (3)
  - Injection site swelling [Recovered/Resolved]
  - Injection site pain [Recovered/Resolved]
  - Injection site abscess [Recovered/Resolved]

NARRATIVE: CASE EVENT DATE: 20240201
